FAERS Safety Report 8924156 (Version 1)
Quarter: 2012Q4

REPORT INFORMATION
  Report Type: 
  Country: US (occurrence: US)
  Receive Date: 20121126
  Receipt Date: 20121126
  Transmission Date: 20130627
  Serious: Yes (Hospitalization, Disabling)
  Sender: FDA-Public Use
  Company Number: US-GLAXOSMITHKLINE-A0852974A

PATIENT
  Age: 49 Year
  Sex: Female
  Weight: 93.6 kg

DRUGS (1)
  1. AVANDIA [Suspect]
     Indication: TYPE 2 DIABETES MELLITUS
     Dosage: 8MG Twice per day
     Route: 048
     Dates: start: 2000, end: 2008

REACTIONS (4)
  - Cerebrovascular accident [Not Recovered/Not Resolved]
  - Hemiparesis [Unknown]
  - Fracture [Unknown]
  - Cardiac murmur [Unknown]
